FAERS Safety Report 13502571 (Version 1)
Quarter: 2017Q2

REPORT INFORMATION
  Report Type: Spontaneous
  Country: FI (occurrence: FI)
  Receive Date: 20170502
  Receipt Date: 20170502
  Transmission Date: 20170830
  Serious: Yes (Other)
  Sender: FDA-Public Use
  Company Number: FI-AMGEN-FINSP2017046049

PATIENT
  Age: 9 Year
  Sex: Male
  Weight: 33 kg

DRUGS (8)
  1. MINIRIN [Concomitant]
     Active Substance: DESMOPRESSIN ACETATE
     Indication: ENURESIS
     Dosage: 240 UG, 1X/DAY
  2. ENBREL [Suspect]
     Active Substance: ETANERCEPT
     Indication: PRODUCT USED FOR UNKNOWN INDICATION
     Dosage: 25 MG, WEEKLY (0.76 MG/KG)
     Route: 065
     Dates: start: 201607, end: 201612
  3. RISPERIDON [Concomitant]
     Active Substance: RISPERIDONE
     Indication: ATTENTION DEFICIT/HYPERACTIVITY DISORDER
     Dosage: 0.5 MG, 1X/DAY
  4. ENBREL [Suspect]
     Active Substance: ETANERCEPT
     Dosage: UNK
     Route: 065
     Dates: start: 2016, end: 201612
  5. PRONAXEN [Concomitant]
     Active Substance: NAPROXEN
     Dosage: 375 MG (250+125 MG), AS NEEDED
  6. MELATONIN [Concomitant]
     Active Substance: MELATONIN
     Indication: ATTENTION DEFICIT/HYPERACTIVITY DISORDER
     Dosage: 2 MG, 1X/DAY
  7. EQUASYM [Concomitant]
     Active Substance: METHYLPHENIDATE HYDROCHLORIDE
     Indication: ATTENTION DEFICIT/HYPERACTIVITY DISORDER
     Dosage: 20 MG, 1X/DAY
  8. MELATONIN [Concomitant]
     Active Substance: MELATONIN
     Indication: ATTENTION DEFICIT/HYPERACTIVITY DISORDER
     Dosage: 1 MG, UNK
     Dates: start: 2014

REACTIONS (7)
  - Irritability [Recovering/Resolving]
  - Restlessness [Recovered/Resolved]
  - Impatience [Recovering/Resolving]
  - Aggression [Recovering/Resolving]
  - Tearfulness [Recovering/Resolving]
  - Anger [Recovered/Resolved]
  - Social problem [Recovering/Resolving]
